FAERS Safety Report 15405995 (Version 1)
Quarter: 2018Q3

REPORT INFORMATION
  Report Type: Spontaneous
  Country: US (occurrence: US)
  Receive Date: 20180920
  Receipt Date: 20180920
  Transmission Date: 20181010
  Serious: No
  Sender: FDA-Public Use
  Company Number: US-PFIZER INC-2018376784

PATIENT
  Sex: Male

DRUGS (1)
  1. LYRICA [Suspect]
     Active Substance: PREGABALIN
     Dosage: UNK

REACTIONS (8)
  - Swelling [Unknown]
  - Peripheral coldness [Unknown]
  - Peripheral swelling [Unknown]
  - Frustration tolerance decreased [Unknown]
  - Insomnia [Unknown]
  - Burning sensation [Unknown]
  - Pain in extremity [Unknown]
  - Gait disturbance [Unknown]
